FAERS Safety Report 15235511 (Version 1)
Quarter: 2018Q3

REPORT INFORMATION
  Report Type: Spontaneous
  Country: US (occurrence: US)
  Receive Date: 20180803
  Receipt Date: 20180803
  Transmission Date: 20181010
  Serious: No
  Sender: FDA-Public Use
  Company Number: US-PFIZER INC-2018313305

PATIENT
  Age: 40 Year
  Sex: Female

DRUGS (1)
  1. VENLAFAXINE HCL [Suspect]
     Active Substance: VENLAFAXINE HYDROCHLORIDE
     Dosage: UNK

REACTIONS (12)
  - Chills [Unknown]
  - Visual impairment [Unknown]
  - Pyrexia [Unknown]
  - Pruritus [Unknown]
  - Vomiting [Unknown]
  - Eye movement disorder [Unknown]
  - Palpitations [Unknown]
  - Crying [Unknown]
  - Drug hypersensitivity [Unknown]
  - Diarrhoea [Unknown]
  - Gait disturbance [Unknown]
  - Panic attack [Unknown]
